FAERS Safety Report 5809038-0 (Version None)
Quarter: 2008Q3

REPORT INFORMATION
  Report Type: 
  Country: None (occurrence: None)
  Receive Date: 20080710
  Receipt Date: 20080710
  Transmission Date: 20090109
  Serious: Yes (Hospitalization)
  Sender: FDA-Public Use
  Company Number: None

PATIENT
  Sex: Female
  Weight: 73 kg

DRUGS (4)
  1. LAPATINIB 250 MG TABLET [Suspect]
     Indication: COLORECTAL CANCER METASTATIC
     Dosage: 1250 MG DAILY PO
     Route: 048
     Dates: start: 20080613, end: 20080621
  2. LAPATINIB 250 MG TABLET [Suspect]
     Indication: COLORECTAL CANCER METASTATIC
     Dosage: 1250 MG DAILY PO
     Route: 048
     Dates: start: 20080624, end: 20080626
  3. CAPECITABINE 500MG TABLET [Suspect]
     Dosage: 3600 MG DAILY PO
     Route: 048
     Dates: start: 20080613, end: 20080621
  4. CAPECITABINE 500MG TABLET [Suspect]
     Dosage: 3600 MG DAILY PO
     Route: 048
     Dates: start: 20080624, end: 20080626

REACTIONS (11)
  - ABDOMINAL PAIN [None]
  - ASTHENIA [None]
  - CONFUSIONAL STATE [None]
  - CONSTIPATION [None]
  - DRUG TOXICITY [None]
  - FALL [None]
  - GAIT DISTURBANCE [None]
  - NAUSEA [None]
  - NEOPLASM PROGRESSION [None]
  - THERAPEUTIC AGENT TOXICITY [None]
  - VOMITING [None]
